FAERS Safety Report 9410066 (Version 2)
Quarter: 2013Q3

REPORT INFORMATION
  Report Type: Spontaneous
  Country: DK (occurrence: DK)
  Receive Date: 20130719
  Receipt Date: 20130827
  Transmission Date: 20140515
  Serious: Yes (Hospitalization)
  Sender: FDA-Public Use
  Company Number: PHHY2013DK074828

PATIENT
  Age: 57 Year
  Sex: Female

DRUGS (8)
  1. PACLITAXEL [Suspect]
     Indication: OVARIAN CANCER
     Dosage: LAST DOSE PRIOR TO SAE ON 16-MAY-2013
     Route: 042
     Dates: start: 20130516, end: 20130516
  2. CARBOPLATIN [Suspect]
     Indication: OVARIAN CANCER
     Dosage: 395 MG, LAST DOSE PRIOR TO SAE ON 16 MAY 2013
     Route: 042
     Dates: start: 20130516
  3. CARBOPLATIN [Suspect]
     Dosage: LAST DOSE PRIOR TO SAE ON 16-MAY-2013
     Route: 042
     Dates: start: 20130516, end: 20130516
  4. BEVACIZUMAB [Concomitant]
     Indication: OVARIAN CANCER
     Dosage: 825 MG, LAST DOSE PRIOR TO SAE ON 16 MAY 2013
     Route: 042
     Dates: start: 20130516
  5. BEVACIZUMAB [Concomitant]
     Dosage: LAST DOSE PRIOR TO SAE ON 16-MAY-2013
     Route: 042
     Dates: start: 20130516
  6. VOGALENE [Concomitant]
     Indication: HYPOTENSION
  7. VOGALENE [Concomitant]
     Indication: ANTIEMETIC SUPPORTIVE CARE
  8. CORODIL [Concomitant]
     Indication: HYPERTENSION
     Dosage: 5 MG, UNK
     Route: 048
     Dates: end: 20130516

REACTIONS (1)
  - Hyponatraemia [Recovering/Resolving]
